FAERS Safety Report 5385431-8 (Version None)
Quarter: 2007Q3

REPORT INFORMATION
  Report Type: 
  Country: None (occurrence: None)
  Receive Date: 20070706
  Receipt Date: 20070706
  Transmission Date: 20080115
  Serious: Yes (Hospitalization)
  Sender: FDA-Public Use
  Company Number: None

PATIENT
  Age: 88 Year
  Sex: Male

DRUGS (2)
  1. MORPHINE [Suspect]
     Indication: PAIN
     Dosage: 30MG TID PO
     Route: 048
     Dates: start: 20030425
  2. OXYCODONE HCL [Suspect]
     Dosage: 5MG PRN PO
     Route: 048

REACTIONS (1)
  - INTESTINAL OBSTRUCTION [None]
